FAERS Safety Report 7688184-3 (Version None)
Quarter: 2011Q3

REPORT INFORMATION
  Report Type: 
  Country: None (occurrence: None)
  Receive Date: 20110817
  Receipt Date: 20110428
  Transmission Date: 20111222
  Serious: No
  Sender: FDA-Public Use
  Company Number: US-GLAXOSMITHKLINE-A0925860A

PATIENT
  Sex: Male

DRUGS (2)
  1. ANTIHYPERTENSIVE [Concomitant]
  2. VOTRIENT [Suspect]
     Indication: PRODUCT USED FOR UNKNOWN INDICATION
     Dosage: 800MGD PER DAY
     Route: 048
     Dates: start: 20110404

REACTIONS (3)
  - DECREASED APPETITE [None]
  - HYPERTENSION [None]
  - HEADACHE [None]
